FAERS Safety Report 7178825-1 (Version None)
Quarter: 2010Q4

REPORT INFORMATION
  Report Type: 
  Country: None (occurrence: None)
  Receive Date: 20101217
  Receipt Date: 20101217
  Transmission Date: 20110411
  Serious: Yes (Hospitalization)
  Sender: FDA-Public Use
  Company Number: None

PATIENT
  Age: 85 Year
  Sex: Male

DRUGS (2)
  1. PRADAXA [Suspect]
     Indication: ATRIAL FIBRILLATION
  2. WARFARIN NOT RECORDED  NOT RECORDED [Suspect]
     Indication: ATRIAL FIBRILLATION

REACTIONS (1)
  - FAECES DISCOLOURED [None]
